FAERS Safety Report 19769293 (Version 1)
Quarter: 2021Q3

REPORT INFORMATION
  Report Type: Spontaneous
  Country: IT (occurrence: IT)
  Receive Date: 20210831
  Receipt Date: 20210831
  Transmission Date: 20211014
  Serious: Yes (Life-Threatening)
  Sender: FDA-Public Use
  Company Number: IT-MYLANLABS-2021M1055593

PATIENT
  Age: 79 Year
  Sex: Male

DRUGS (1)
  1. PACLITAXEL MYLAN GENERICS 6 MG/ML [Suspect]
     Active Substance: PACLITAXEL
     Indication: PENILE CANCER
     Dosage: 135 MILLIGRAM, QW
     Route: 042
     Dates: start: 20210211, end: 20210218

REACTIONS (5)
  - Erythema [Unknown]
  - Laryngeal oedema [Unknown]
  - Hypotension [Unknown]
  - Chest discomfort [Unknown]
  - Paraesthesia oral [Unknown]

NARRATIVE: CASE EVENT DATE: 20210219
